FAERS Safety Report 24002190 (Version 1)
Quarter: 2024Q2

REPORT INFORMATION
  Report Type: Spontaneous
  Country: SA (occurrence: SA)
  Receive Date: 20240622
  Receipt Date: 20240622
  Transmission Date: 20240716
  Serious: Yes (Hospitalization, Other)
  Sender: FDA-Public Use
  Company Number: SA-BIOCON BIOLOGICS LIMITED-BBL2024004521

PATIENT

DRUGS (2)
  1. INSULIN ASPART [Suspect]
     Active Substance: INSULIN ASPART
     Indication: Type 1 diabetes mellitus
     Dosage: UNK UNK, QD, 0.8 TO 1 UNITS/KG/DAY
     Route: 065
  2. INSULIN DEGLUDEC [Suspect]
     Active Substance: INSULIN DEGLUDEC
     Indication: Type 1 diabetes mellitus
     Dosage: UNK, QD, 0.8 TO 1 UNITS/KG/DAY
     Route: 065

REACTIONS (1)
  - Hypoglycaemic seizure [Unknown]
